FAERS Safety Report 6453174-5 (Version None)
Quarter: 2009Q4

REPORT INFORMATION
  Report Type: 
  Country: None (occurrence: None)
  Receive Date: 20091123
  Receipt Date: 20091123
  Transmission Date: 20100525
  Serious: Yes (Disabling)
  Sender: FDA-Public Use
  Company Number: None

PATIENT
  Age: 32 Year
  Sex: Male
  Weight: 74.8435 kg

DRUGS (1)
  1. D-AMPHETAMINE SALT COMBO 30MG BARR/TEVA [Suspect]
     Indication: NARCOLEPSY
     Dosage: 30MG 3 TIMES DAILY PO
     Route: 048
     Dates: start: 20090610, end: 20091101

REACTIONS (2)
  - DYSPHEMIA [None]
  - SPEECH DISORDER [None]
